FAERS Safety Report 13449120 (Version 1)
Quarter: 2017Q2

REPORT INFORMATION
  Report Type: Spontaneous
  Country: US (occurrence: US)
  Receive Date: 20170417
  Receipt Date: 20170417
  Transmission Date: 20170830
  Serious: Yes (Other)
  Sender: FDA-Public Use
  Company Number: US-PFIZER INC-2017090261

PATIENT
  Age: 69 Year
  Sex: Male

DRUGS (4)
  1. KEPPRA [Concomitant]
     Active Substance: LEVETIRACETAM
     Indication: SEIZURE
     Dosage: 500 MG, 2X/DAY
     Dates: start: 201411
  2. SUTENT [Suspect]
     Active Substance: SUNITINIB MALATE
     Indication: METASTATIC RENAL CELL CARCINOMA
     Dosage: 50 MG, CYCLIC (50 MG QHS X28D THEN 2 WKS REST)
     Route: 048
     Dates: start: 20170123, end: 20170209
  3. ASA [Concomitant]
     Active Substance: ASPIRIN
     Dosage: 81 MG, DAILY (81MG Q DAY)
  4. LEVOTHYROXINE. [Concomitant]
     Active Substance: LEVOTHYROXINE
     Dosage: 50 UG, DAILY (QDAY)

REACTIONS (12)
  - Fatigue [Unknown]
  - Rectal haemorrhage [Unknown]
  - Eye contusion [Unknown]
  - Lacrimation increased [Unknown]
  - Confusional state [Unknown]
  - Pain [Unknown]
  - Conjunctival hyperaemia [Unknown]
  - Candida infection [Unknown]
  - Stomatitis [Unknown]
  - Eye pain [Unknown]
  - Dizziness [Unknown]
  - Hallucination, auditory [Unknown]

NARRATIVE: CASE EVENT DATE: 20170202
